FAERS Safety Report 18754818 (Version 1)
Quarter: 2021Q1

REPORT INFORMATION
  Report Type: Spontaneous
  Country: US (occurrence: US)
  Receive Date: 20210115
  Receipt Date: 20210115
  Transmission Date: 20210419
  Serious: Yes (Other)
  Sender: FDA-Public Use
  Company Number: None

PATIENT
  Age: 60 Year
  Sex: Male
  Weight: 85 kg

DRUGS (12)
  1. DULOXETINE 30 MG [Concomitant]
     Active Substance: DULOXETINE
     Dates: start: 20201231
  2. LISINOPRIL. [Concomitant]
     Active Substance: LISINOPRIL
     Dates: start: 20201026
  3. PROPRANOLOL 20 MG [Concomitant]
     Active Substance: PROPRANOLOL HYDROCHLORIDE
     Dates: start: 20201231
  4. MAGNESIUM OXIDE 400 MG [Concomitant]
     Active Substance: MAGNESIUM OXIDE
     Dates: start: 20210107
  5. DOXEPIN 10 MG [Concomitant]
     Dates: start: 20201231
  6. IBUPROFEN 800 MG [Concomitant]
     Active Substance: IBUPROFEN
     Dates: start: 20201231
  7. PRAZOSIN 2 MG [Concomitant]
     Dates: start: 20201221
  8. CETIRIZINE [Concomitant]
     Active Substance: CETIRIZINE HYDROCHLORIDE
     Dates: start: 20210110
  9. GABAPENTIN 300 MG [Concomitant]
     Active Substance: GABAPENTIN
     Dates: start: 20201231
  10. SILDENAFIL CITRATE 100 MG [Concomitant]
     Active Substance: SILDENAFIL CITRATE
     Dates: start: 20201231
  11. CASIRIVIMAB AND IMDEVIMAB [Suspect]
     Active Substance: CASIRIVIMAB\IMDEVIMAB
     Indication: COVID-19
     Route: 041
     Dates: start: 20210111, end: 20210111
  12. BENZONATATE 100 MG [Concomitant]
     Active Substance: BENZONATATE
     Dates: start: 20210108

REACTIONS (3)
  - Diarrhoea [None]
  - Pain [None]
  - Blood pressure decreased [None]

NARRATIVE: CASE EVENT DATE: 20210113
